FAERS Safety Report 6115527-4 (Version None)
Quarter: 2009Q1

REPORT INFORMATION
  Report Type: 
  Country: None (occurrence: None)
  Receive Date: 20090313
  Receipt Date: 20090311
  Transmission Date: 20090719
  Serious: Yes (Death)
  Sender: FDA-Public Use
  Company Number: RU-ASTRAZENECA-2009SE01088

PATIENT
  Age: 45 Year
  Sex: Female

DRUGS (1)
  1. MARCAINE [Suspect]
     Indication: ANAESTHESIA
     Route: 037

REACTIONS (1)
  - ANAPHYLACTIC SHOCK [None]
